FAERS Safety Report 9663432 (Version 3)
Quarter: 2013Q4

REPORT INFORMATION
  Report Type: Report from Study
  Country: BE (occurrence: BE)
  Receive Date: 20131101
  Receipt Date: 20131205
  Transmission Date: 20140711
  Serious: Yes (Life-Threatening, Hospitalization)
  Sender: FDA-Public Use
  Company Number: BE-CELGENEUS-013-C4047-13105190

PATIENT
  Age: 73 Year
  Sex: Female
  Weight: 61.5 kg

DRUGS (14)
  1. CC-4047 [Suspect]
     Indication: PLASMA CELL MYELOMA
     Dosage: 4 MILLIGRAM
     Route: 048
     Dates: start: 20130919, end: 20131010
  2. CC-4047 [Suspect]
     Dosage: 4 MILLIGRAM
     Route: 048
     Dates: start: 20131017, end: 20131026
  3. CC-4047 [Suspect]
     Dosage: 4 MILLIGRAM
     Route: 048
     Dates: end: 20131119
  4. DEXAMETHASONE [Suspect]
     Indication: PLASMA CELL MYELOMA
     Dosage: 40 MILLIGRAM
     Route: 065
     Dates: start: 20130919, end: 20131010
  5. DEXAMETHASONE [Suspect]
     Dosage: 40 MILLIGRAM
     Route: 065
     Dates: start: 20131017, end: 20131026
  6. DEXAMETHASONE [Suspect]
     Dosage: 40 MILLIGRAM
     Route: 065
     Dates: end: 20131119
  7. RANITIDINE [Concomitant]
     Indication: GASTROOESOPHAGEAL REFLUX DISEASE
     Dosage: 300 MILLIGRAM
     Route: 065
     Dates: start: 20060706
  8. STILNOCT [Concomitant]
     Indication: INSOMNIA
     Dosage: 10 MILLIGRAM
     Route: 065
     Dates: start: 20080513
  9. XANAX [Concomitant]
     Indication: INSOMNIA
     Route: 065
     Dates: start: 20080513
  10. MULTIGAM [Concomitant]
     Indication: HYPOGAMMAGLOBULINAEMIA
     Dosage: MILLIGRAM
     Route: 065
     Dates: start: 19930205
  11. FRAXODI [Concomitant]
     Indication: PULMONARY EMBOLISM
     Dosage: 6 MILLILITER
     Route: 065
     Dates: start: 20130620, end: 20131017
  12. ASAFLOW [Concomitant]
     Indication: THROMBOSIS PROPHYLAXIS
     Dosage: 80 MILLIGRAM
     Route: 065
     Dates: start: 20131018
  13. MOVICOL [Concomitant]
     Indication: CONSTIPATION
     Route: 065
     Dates: start: 20130923, end: 20130928
  14. DAFALGAN [Concomitant]
     Indication: MUSCULOSKELETAL PAIN
     Route: 065
     Dates: start: 20130718

REACTIONS (2)
  - Pneumonia [Recovered/Resolved]
  - Streptococcal infection [Not Recovered/Not Resolved]
